FAERS Safety Report 13731457 (Version 2)
Quarter: 2018Q1

REPORT INFORMATION
  Report Type: Report from Study
  Country: KR (occurrence: KR)
  Receive Date: 20170707
  Receipt Date: 20180116
  Transmission Date: 20180508
  Serious: No
  Sender: FDA-Public Use
  Company Number: KR-BRISTOL-MYERS SQUIBB COMPANY-BMS-2017-031623

PATIENT
  Age: 49 Year
  Sex: Female
  Weight: 66.4 kg

DRUGS (12)
  1. THIAMINE HCL [Concomitant]
     Active Substance: THIAMINE HYDROCHLORIDE
     Indication: CHRONIC HEPATITIS C
     Dosage: 3 TAB, UNK
     Route: 048
     Dates: start: 20160816
  2. DAILIX [Concomitant]
     Indication: PROPHYLAXIS
     Dosage: 0.5 TAB, UNK
     Route: 048
     Dates: start: 20161004, end: 20170220
  3. LIVACT                             /00847901/ [Concomitant]
     Active Substance: ISOLEUCINE\LEUCINE\VALINE
     Indication: HEPATIC CIRRHOSIS
     Dosage: UNK
     Route: 048
     Dates: start: 20161004
  4. DACLATASVIR DIHYDROCHLORIDE [Suspect]
     Active Substance: DACLATASVIR DIHYDROCHLORIDE
     Indication: CHRONIC HEPATITIS C
     Dosage: UNK UNK, QD
     Route: 065
     Dates: start: 20161219, end: 20170220
  5. NORMIX [Concomitant]
     Active Substance: RIFAXIMIN
     Indication: PROPHYLAXIS
     Dosage: 3 TAB, UNK
     Route: 048
     Dates: start: 20161004
  6. ALDACTONE [Concomitant]
     Active Substance: SPIRONOLACTONE
     Indication: PROPHYLAXIS
     Dosage: 2 TAB, UNK
     Route: 048
     Dates: start: 20161004, end: 20170220
  7. SOVALDI [Concomitant]
     Active Substance: SOFOSBUVIR
     Indication: CHRONIC HEPATITIS C
     Dosage: 400 MG, UNK
     Route: 048
     Dates: start: 20161219, end: 20170313
  8. ASUNAPREVIR [Suspect]
     Active Substance: ASUNAPREVIR
     Indication: CHRONIC HEPATITIS C
     Dosage: UNK, QD
     Route: 065
     Dates: start: 20161219, end: 20170220
  9. URSA [Concomitant]
     Active Substance: URSODIOL
     Indication: CHRONIC HEPATITIS C
     Dosage: 3 TAB, UNK
     Route: 048
     Dates: start: 20160815
  10. INDENOL [Concomitant]
     Active Substance: PROPRANOLOL HYDROCHLORIDE
     Indication: PROPHYLAXIS
     Dosage: 4 TAB, UNK
     Route: 048
     Dates: start: 20161110
  11. M-COBAL [Concomitant]
     Indication: VITAMIN SUPPLEMENTATION
     Dosage: 1 DF, UNK
     Route: 048
     Dates: start: 20160822
  12. ANTIBIO [Concomitant]
     Indication: PRODUCT USED FOR UNKNOWN INDICATION
     Dosage: 1 DF, UNK
     Route: 048
     Dates: start: 20160817

REACTIONS (4)
  - Constipation [Recovered/Resolved]
  - Dyspepsia [Recovered/Resolved]
  - Oedema peripheral [Recovered/Resolved]
  - Off label use [Unknown]

NARRATIVE: CASE EVENT DATE: 20161219
